FAERS Safety Report 5682509-6 (Version None)
Quarter: 2008Q1

REPORT INFORMATION
  Report Type: 
  Country: None (occurrence: None)
  Receive Date: 20080326
  Receipt Date: 20080326
  Transmission Date: 20080703
  Serious: No
  Sender: FDA-Public Use
  Company Number: None

PATIENT
  Age: 64 Year
  Sex: Male
  Weight: 65 kg

DRUGS (16)
  1. LINEZOLID [Suspect]
     Indication: ENTEROCOCCAL BACTERAEMIA
     Dosage: 600MG IV Q12HRS
     Route: 042
     Dates: start: 20071209, end: 20071220
  2. CASPOFUNGIN [Concomitant]
  3. PIPERACILLIN AND TAZOBACTAM [Concomitant]
  4. FLUCONAZOLE [Concomitant]
  5. ACYCLOVIR [Concomitant]
  6. PREDNISONE TAB [Concomitant]
  7. SIROLIMUS [Concomitant]
  8. ASPIRIN [Concomitant]
  9. MAGNESIUM OXIDE [Concomitant]
  10. RANITIDINE [Concomitant]
  11. PRAVASTATIN [Concomitant]
  12. HYDROMORPHONE HCL [Concomitant]
  13. LEVOTHYROXINE SODIUM [Concomitant]
  14. METOPROLOL TARTRATE [Concomitant]
  15. AMLODIPINE [Concomitant]
  16. TEMAZEPAM [Concomitant]

REACTIONS (1)
  - PLATELET COUNT DECREASED [None]
